FAERS Safety Report 10574664 (Version 5)
Quarter: 2015Q1

REPORT INFORMATION
  Report Type: Spontaneous
  Country: US (occurrence: US)
  Receive Date: 20141110
  Receipt Date: 20150202
  Transmission Date: 20150720
  Serious: Yes (Other)
  Sender: FDA-Public Use
  Company Number: US-PFIZER INC-2014304880

PATIENT
  Age: 65 Year
  Sex: Male
  Weight: 116 kg

DRUGS (21)
  1. LYRICA [Suspect]
     Active Substance: PREGABALIN
     Indication: PAIN IN EXTREMITY
     Dosage: 150 MG, 4X/DAY (1 IN MORNING, 1 IN AFTERNOON, 2 AT NIGHT)
     Route: 048
     Dates: start: 2014
  2. DIAZEPAM. [Concomitant]
     Active Substance: DIAZEPAM
     Indication: NEUROPATHY PERIPHERAL
     Dosage: 10 MG, 1X/DAY
     Route: 048
  3. SAW PALMETTO [Concomitant]
     Active Substance: SAW PALMETTO
     Indication: URINARY TRACT DISORDER
  4. BUDESONIDE. [Concomitant]
     Active Substance: BUDESONIDE
     Dosage: 0.5 MG, UNK
  5. ONE A DAY MENS [Concomitant]
     Active Substance: VITAMINS
     Indication: ROUTINE HEALTH MAINTENANCE
     Dosage: 1 DF, 1X/DAY
     Route: 048
  6. GEMFIBROZIL. [Concomitant]
     Active Substance: GEMFIBROZIL
     Indication: CARDIAC DISORDER
     Dosage: 600 MG, 2X/DAY (MORNING AND AFTERNOON)
     Route: 048
  7. DILTIAZEM [Concomitant]
     Active Substance: DILTIAZEM
     Dosage: 300 MG, DAILY
     Route: 048
  8. BEE POLLEN [Concomitant]
     Active Substance: BEE POLLEN
     Indication: ASTHENIA
     Dosage: 550 MG, 1X/DAY
     Route: 048
  9. ALENDRONATE SODIUM. [Concomitant]
     Active Substance: ALENDRONATE SODIUM
     Indication: ILL-DEFINED DISORDER
     Dosage: 70 MG, WEEKLY
     Route: 048
  10. FOLIC ACID. [Concomitant]
     Active Substance: FOLIC ACID
     Indication: PROSTATIC DISORDER
     Dosage: 1 MG, 1X/DAY
     Route: 048
  11. BAYER ASPIRIN [Concomitant]
     Active Substance: ASPIRIN
     Indication: CARDIAC DISORDER
     Dosage: 325 MG, DAILY
     Route: 048
  12. FISH OIL [Concomitant]
     Active Substance: FISH OIL
     Indication: CARDIAC DISORDER
     Dosage: 2 SOFTGEL OF 1000 MG A DAY
     Route: 048
  13. CAPTOPRIL. [Concomitant]
     Active Substance: CAPTOPRIL
     Dosage: 12.5 MG, 2X/DAY (MORNING AND AFTERNOON)
     Route: 048
  14. LYRICA [Suspect]
     Active Substance: PREGABALIN
     Indication: DIABETIC NEUROPATHY
  15. SAW PALMETTO [Concomitant]
     Active Substance: SAW PALMETTO
     Indication: PROSTATIC DISORDER
     Dosage: 2 CAPSULE OF 450 MG A DAY IN THE MORNING
     Route: 048
  16. TRAMADOL [Concomitant]
     Active Substance: TRAMADOL
     Indication: PAIN
     Dosage: 200 MG (1 TABLET), AT BEDTIME
     Route: 048
  17. VITAMIN C [Concomitant]
     Active Substance: ASCORBIC ACID
     Indication: VITAMIN C DEFICIENCY
     Dosage: 1000 MG, 1X/DAY
     Route: 048
  18. LYRICA [Suspect]
     Active Substance: PREGABALIN
     Indication: NEURALGIA
  19. TRAMADOL [Concomitant]
     Active Substance: TRAMADOL
     Dosage: 100 MG (50MG 2 TABLETS), 1X/DAY (AT BEDTIME)
     Route: 048
  20. CLOPIDOGREL [Concomitant]
     Active Substance: CLOPIDOGREL BISULFATE
     Indication: CARDIAC DISORDER
     Dosage: 75 MG, 1X/DAY
     Route: 048
  21. HYDROCHLOROTHIAZIDE. [Concomitant]
     Active Substance: HYDROCHLOROTHIAZIDE
     Indication: DIURETIC THERAPY
     Dosage: 25 MG, DAILY
     Route: 048

REACTIONS (9)
  - Weight increased [Unknown]
  - Crying [Recovered/Resolved]
  - Tobacco abuse [Recovered/Resolved]
  - Aggression [Recovered/Resolved]
  - Pain [Unknown]
  - Dry mouth [Unknown]
  - Drug ineffective [Unknown]
  - Drug dependence [Unknown]
  - Self-injurious ideation [Recovered/Resolved]

NARRATIVE: CASE EVENT DATE: 2014
